FAERS Safety Report 25570750 (Version 4)
Quarter: 2025Q3

REPORT INFORMATION
  Report Type: Spontaneous
  Country: JP (occurrence: JP)
  Receive Date: 20250717
  Receipt Date: 20250828
  Transmission Date: 20251021
  Serious: Yes (Hospitalization)
  Sender: AMGEN
  Company Number: JP-BEH-2025212592

PATIENT
  Age: 66 Year
  Sex: Female
  Weight: 48 kg

DRUGS (4)
  1. TAVNEOS [Suspect]
     Active Substance: AVACOPAN
     Indication: Microscopic polyangiitis
     Dosage: 20 MG, QD
     Route: 048
     Dates: start: 20240704, end: 20240731
  2. TAVNEOS [Suspect]
     Active Substance: AVACOPAN
     Dosage: 40 MG, QD
     Route: 048
     Dates: start: 20240801, end: 20240811
  3. BOS TAURUS ADRENAL CORTEX CORTICOSTEROIDS [Concomitant]
     Active Substance: BOS TAURUS ADRENAL CORTEX CORTICOSTEROIDS
     Indication: Microscopic polyangiitis
     Dosage: 5 MG, QD
     Route: 065
     Dates: start: 20230627
  4. SULFAMETHOXAZOLE\TRIMETHOPRIM [Concomitant]
     Active Substance: SULFAMETHOXAZOLE\TRIMETHOPRIM
     Indication: Antifungal prophylaxis
     Dosage: 0.5 DF, QD
     Route: 048

REACTIONS (2)
  - Liver disorder [Recovering/Resolving]
  - Intentional underdose [Unknown]

NARRATIVE: CASE EVENT DATE: 20240704
